FAERS Safety Report 9409629 (Version 1)
Quarter: 2013Q3

REPORT INFORMATION
  Report Type: Spontaneous
  Country: NL (occurrence: NL)
  Receive Date: 20130719
  Receipt Date: 20130719
  Transmission Date: 20140515
  Serious: Yes (Death)
  Sender: FDA-Public Use
  Company Number: PHHY2013NL076170

PATIENT
  Sex: Male

DRUGS (20)
  1. EXELON PATCH [Suspect]
     Indication: DEMENTIA
     Dosage: UNK UKN, UNK
     Route: 062
     Dates: end: 20091110
  2. EXELON PATCH [Suspect]
     Dosage: UNK UKN, UNK
     Route: 062
  3. CLOZAPINE [Suspect]
     Indication: SEDATION
     Dosage: UNK UKN, UNK
     Route: 048
     Dates: start: 201001
  4. FOLIC ACID [Concomitant]
     Dosage: UNK UKN, UNK
     Dates: end: 20091110
  5. PREDNISONE [Concomitant]
     Dosage: UNK UKN, UNK
  6. PREDNISONE [Concomitant]
     Dosage: UNK DECREASED DOSE BY HALF, UNK
     Dates: end: 20091110
  7. OMEPRAZOL [Concomitant]
     Dosage: UNK UKN, UNK
     Dates: end: 20091110
  8. PARACETAMOL [Concomitant]
     Dosage: UNK UKN, UNK
     Dates: end: 20091110
  9. MACROGOL [Concomitant]
     Dosage: UNK UKN, UNK
     Dates: end: 20091110
  10. LACTULOSE [Concomitant]
     Dosage: UNK UKN, UNK
     Dates: start: 20091110
  11. TAMBOCOR [Concomitant]
     Dosage: 150 MG, UNK
  12. TAMBOCOR [Concomitant]
     Dosage: 100 MG, UNK
  13. PERSANTIN [Concomitant]
     Indication: TRANSIENT ISCHAEMIC ATTACK
     Dosage: UNK UKN, UNK
  14. PERSANTIN [Concomitant]
     Dosage: UNK UKN, UNK
  15. ASA [Concomitant]
     Dosage: UNK UKN, UNK
  16. VITAMIN D3 [Concomitant]
     Dosage: UNK UKN, UNK
  17. VITAMIN B12 [Concomitant]
     Dosage: UNK UKN, UNK
  18. MORPHINE [Concomitant]
     Dosage: UNK UKN, UNK
     Dates: start: 201001
  19. LASIX [Concomitant]
     Dosage: UNK UKN, UNK
     Dates: start: 201001
  20. DIAZEPAM [Concomitant]
     Dosage: UNK UKN, UNK
     Route: 058
     Dates: start: 201001

REACTIONS (1)
  - Death [Fatal]
